FAERS Safety Report 19963292 (Version 1)
Quarter: 2021Q4

REPORT INFORMATION
  Report Type: Spontaneous
  Country: FR (occurrence: FR)
  Receive Date: 20211018
  Receipt Date: 20211018
  Transmission Date: 20220303
  Serious: Yes (Hospitalization, Other)
  Sender: FDA-Public Use
  Company Number: FR-NOVARTISPH-NVSC2017FR019907

PATIENT
  Age: 4 Year
  Sex: Female

DRUGS (16)
  1. DOXORUBICIN HYDROCHLORIDE [Suspect]
     Active Substance: DOXORUBICIN HYDROCHLORIDE
     Indication: Acute lymphocytic leukaemia
     Dosage: 17.4 MG, QD
     Route: 042
     Dates: start: 20171106, end: 20171213
  2. METHOTREXATE [Suspect]
     Active Substance: METHOTREXATE
     Indication: Acute lymphocytic leukaemia
     Dosage: 12 MG, QD
     Route: 037
     Dates: start: 20171109, end: 20171109
  3. METHOTREXATE [Suspect]
     Active Substance: METHOTREXATE
     Dosage: 17.5 MG, QD
     Route: 048
     Dates: start: 20170803
  4. METHOTREXATE [Suspect]
     Active Substance: METHOTREXATE
     Dosage: 12 MG, QD
     Route: 037
     Dates: start: 20170608
  5. CYTARABINE [Suspect]
     Active Substance: CYTARABINE
     Indication: Acute lymphocytic leukaemia
     Dosage: 50 MG, QD
     Route: 042
     Dates: start: 20171229, end: 20180118
  6. DEXAMETHASONE [Suspect]
     Active Substance: DEXAMETHASONE
     Indication: Acute lymphocytic leukaemia
     Dosage: 7 MG, QD (CUMULATIVE DOSE: 503 MG)
     Route: 048
     Dates: start: 20171106, end: 20171120
  7. DEXAMETHASONE [Suspect]
     Active Substance: DEXAMETHASONE
     Dosage: 4 MG, QD
     Route: 048
     Dates: start: 20170615, end: 20170925
  8. CYCLOPHOSPHAMIDE [Suspect]
     Active Substance: CYCLOPHOSPHAMIDE
     Indication: Acute lymphocytic leukaemia
     Dosage: 650 MG, QD
     Route: 042
     Dates: start: 20171227, end: 20171227
  9. VINCRISTINE [Suspect]
     Active Substance: VINCRISTINE
     Indication: Acute lymphocytic leukaemia
     Dosage: 1.1 MG, QD (CUMULATIVE DOSE: 14.368 MG)
     Route: 042
     Dates: start: 20171106, end: 20171213
  10. VINCRISTINE [Suspect]
     Active Substance: VINCRISTINE
     Dosage: 1 MG, QD  (CUMULATIVE DOSE: 14.368 MG)
     Route: 042
     Dates: start: 20170615
  11. MERCAPTOPURINE [Suspect]
     Active Substance: MERCAPTOPURINE
     Indication: Acute lymphocytic leukaemia
     Dosage: 35 MG, QD
     Route: 048
     Dates: start: 20170727
  12. PEGASPARGASE [Suspect]
     Active Substance: PEGASPARGASE
     Indication: Acute lymphocytic leukaemia
     Dosage: 900 IU, QD
     Route: 042
     Dates: start: 20170619
  13. PEGASPARGASE [Suspect]
     Active Substance: PEGASPARGASE
     Dosage: 1750 IU, QD
     Route: 042
     Dates: start: 20171109, end: 20171109
  14. PEGASPARGASE [Suspect]
     Active Substance: PEGASPARGASE
     Dosage: UNK
     Route: 065
  15. THIOGUANINE ANHYDROUS [Suspect]
     Active Substance: THIOGUANINE ANHYDROUS
     Indication: Acute lymphocytic leukaemia
     Dosage: 40 MG, QD
     Route: 048
     Dates: start: 20171227, end: 20180109
  16. ADRIAMYCIN [Suspect]
     Active Substance: DOXORUBICIN HYDROCHLORIDE
     Indication: Acute lymphocytic leukaemia
     Dosage: 17.4 MG, QD
     Route: 042
     Dates: start: 20171106, end: 20171213

REACTIONS (7)
  - Perineal infection [Recovered/Resolved]
  - Necrosis [Recovered/Resolved]
  - Perineal necrosis [Recovered/Resolved]
  - Febrile bone marrow aplasia [Recovered/Resolved]
  - Product use in unapproved indication [Unknown]
  - Off label use [Unknown]
  - Medication error [Recovered/Resolved]

NARRATIVE: CASE EVENT DATE: 20171106
